FAERS Safety Report 6810347-7 (Version None)
Quarter: 2010Q2

REPORT INFORMATION
  Report Type: 
  Country: None (occurrence: None)
  Receive Date: 20100630
  Receipt Date: 20100621
  Transmission Date: 20101027
  Serious: Yes (Hospitalization, Other)
  Sender: FDA-Public Use
  Company Number: US-ABBOTT-10P-163-0652922-00

PATIENT
  Sex: Male
  Weight: 90.8 kg

DRUGS (4)
  1. HUMIRA [Suspect]
     Indication: PSORIASIS
     Dates: start: 20090701, end: 20100502
  2. TELMISARTAN [Concomitant]
     Indication: HYPERTENSION
     Dates: start: 20090701
  3. UNKNOWN EYE DROPS [Concomitant]
     Indication: DRUG USE FOR UNKNOWN INDICATION
  4. CELEXA [Concomitant]
     Indication: ANXIETY

REACTIONS (8)
  - BLEPHAROSPASM [None]
  - BLOOD PRESSURE INCREASED [None]
  - COUGH [None]
  - DIZZINESS [None]
  - FLUSHING [None]
  - HEAT STROKE [None]
  - HYPERHIDROSIS [None]
  - UPPER RESPIRATORY TRACT INFECTION [None]
